FAERS Safety Report 8091448-5 (Version None)
Quarter: 2012Q1

REPORT INFORMATION
  Report Type: 
  Country: None (occurrence: None)
  Receive Date: 20120129
  Receipt Date: 20111228
  Transmission Date: 20120608
  Serious: Yes (Hospitalization, Other)
  Sender: FDA-Public Use
  Company Number: PR-ABBOTT-11P-131-0884783-00

PATIENT
  Sex: Male
  Weight: 90.8 kg

DRUGS (6)
  1. EXFORGE [Concomitant]
     Indication: HYPERTENSION
     Route: 048
  2. RELAFEN [Concomitant]
     Indication: PAIN
     Route: 048
  3. HUMIRA [Suspect]
     Indication: PRODUCT USED FOR UNKNOWN INDICATION
     Route: 058
     Dates: end: 20111201
  4. PROZAC [Concomitant]
     Indication: ANXIETY
     Route: 048
  5. AMBIEN [Concomitant]
     Indication: SLEEP DISORDER THERAPY
     Route: 048
  6. ZIAC [Concomitant]
     Indication: HYPERTENSION
     Route: 048

REACTIONS (3)
  - CELLULITIS [None]
  - CELLULITIS STAPHYLOCOCCAL [None]
  - IMMUNODEFICIENCY [None]
